FAERS Safety Report 12202433 (Version 1)
Quarter: 2016Q1

REPORT INFORMATION
  Report Type: Spontaneous
  Country: US (occurrence: US)
  Receive Date: 20160322
  Receipt Date: 20160322
  Transmission Date: 20160526
  Serious: Yes (Hospitalization, Other)
  Sender: FDA-Public Use
  Company Number: US-ABBVIE-16P-163-1585350-00

PATIENT
  Age: 45 Year
  Sex: Female

DRUGS (5)
  1. RIFABUTIN. [Suspect]
     Active Substance: RIFABUTIN
     Indication: PRODUCT USED FOR UNKNOWN INDICATION
     Dosage: AT MORNING
     Route: 048
     Dates: start: 20151030, end: 20160219
  2. TENOFOVIR [Concomitant]
     Active Substance: TENOFOVIR
     Indication: PRODUCT USED FOR UNKNOWN INDICATION
     Dates: end: 20160219
  3. KALETRA [Suspect]
     Active Substance: LOPINAVIR\RITONAVIR
     Indication: PRODUCT USED FOR UNKNOWN INDICATION
     Route: 048
     Dates: start: 20151105, end: 20160218
  4. ISONIAZID. [Suspect]
     Active Substance: ISONIAZID
     Indication: TUBERCULOSIS
     Dosage: AT MORNING
     Route: 048
  5. LAMIVUDINE. [Concomitant]
     Active Substance: LAMIVUDINE
     Indication: PRODUCT USED FOR UNKNOWN INDICATION
     Dates: end: 20160219

REACTIONS (9)
  - Asthenia [Unknown]
  - Mouth injury [Unknown]
  - Fatigue [Unknown]
  - Hepatic enzyme increased [Unknown]
  - Altered state of consciousness [Unknown]
  - Cerebral calcification [Not Recovered/Not Resolved]
  - Incoherent [Unknown]
  - Seizure [Not Recovered/Not Resolved]
  - Abdominal pain upper [Unknown]

NARRATIVE: CASE EVENT DATE: 20160205
